FAERS Safety Report 6768234-9 (Version None)
Quarter: 2010Q2

REPORT INFORMATION
  Report Type: 
  Country: None (occurrence: None)
  Receive Date: 20100614
  Receipt Date: 20100608
  Transmission Date: 20101027
  Serious: Yes (Hospitalization)
  Sender: FDA-Public Use
  Company Number: JP-BAYER-201011366BYL

PATIENT
  Age: 71 Year
  Sex: Male
  Weight: 54 kg

DRUGS (2)
  1. NEXAVAR [Suspect]
     Indication: HEPATIC NEOPLASM MALIGNANT
     Dosage: UNIT DOSE: 200 MG
     Route: 048
     Dates: start: 20100107, end: 20100304
  2. NEXAVAR [Suspect]
     Dosage: UNIT DOSE: 200 MG
     Route: 048
     Dates: start: 20100305, end: 20100319

REACTIONS (3)
  - HYPERTENSION [None]
  - LIVER DISORDER [None]
  - PALMAR-PLANTAR ERYTHRODYSAESTHESIA SYNDROME [None]
